FAERS Safety Report 21623797 (Version 3)
Quarter: 2022Q4

REPORT INFORMATION
  Report Type: Report from Study
  Country: GB (occurrence: GB)
  Receive Date: 20221121
  Receipt Date: 20221206
  Transmission Date: 20230112
  Serious: Yes (Hospitalization)
  Sender: FDA-Public Use
  Company Number: GB-PFIZER INC-PV202200055162

PATIENT
  Age: 62 Year
  Sex: Male
  Weight: 58.3 kg

DRUGS (3)
  1. CARBOPLATIN [Suspect]
     Active Substance: CARBOPLATIN
     Indication: Anal squamous cell carcinoma
     Dosage: AUC 5 MG/ML PER MINUTE ON DAY 1 OF EACH 28-DAY CYCLE (6 CYCLES)
     Route: 042
  2. PACLITAXEL [Suspect]
     Active Substance: PACLITAXEL
     Indication: Anal squamous cell carcinoma
     Dosage: 80 MILLIGRAM/SQ. METER, ON DAY 1, 8 AND 15 OF EACH 28-DAY CYCLE (6 CYCLES)
     Route: 042
  3. INVESTIGATIONAL PRODUCT [Suspect]
     Active Substance: INVESTIGATIONAL PRODUCT
     Indication: Anal squamous cell carcinoma
     Dosage: 500 MILLIGRAM, ON DAY 1 OF EACH 28-DAY CYCLE
     Route: 042
     Dates: start: 20220623

REACTIONS (2)
  - Intestinal obstruction [Recovering/Resolving]
  - Nausea [Recovering/Resolving]

NARRATIVE: CASE EVENT DATE: 20220804
